FAERS Safety Report 14840857 (Version 1)
Quarter: 2018Q2

REPORT INFORMATION
  Report Type: Spontaneous
  Country: US (occurrence: US)
  Receive Date: 20180503
  Receipt Date: 20180503
  Transmission Date: 20180711
  Serious: No
  Sender: FDA-Public Use
  Company Number: US-PFIZER INC-2018179123

PATIENT
  Age: 71 Year
  Sex: Female

DRUGS (13)
  1. DAYPRO [Suspect]
     Active Substance: OXAPROZIN
     Dosage: UNK
  2. CLONIDINE. [Suspect]
     Active Substance: CLONIDINE
     Dosage: UNK
  3. METHADONE [Suspect]
     Active Substance: METHADONE HYDROCHLORIDE
     Dosage: UNK
  4. SERENTIL [Suspect]
     Active Substance: MESORIDAZINE BESYLATE
     Dosage: UNK
  5. AMPICILLIN SODIUM. [Suspect]
     Active Substance: AMPICILLIN SODIUM
     Dosage: UNK
  6. NARDIL [Suspect]
     Active Substance: PHENELZINE SULFATE
     Dosage: UNK
  7. BACTRIM [Suspect]
     Active Substance: SULFAMETHOXAZOLE\TRIMETHOPRIM
     Dosage: UNK
  8. PROTRIPTYLINE [Suspect]
     Active Substance: PROTRIPTYLINE
     Dosage: UNK
  9. MICONAZOLE NITRATE. [Suspect]
     Active Substance: MICONAZOLE NITRATE
     Dosage: UNK
  10. OXYCODONE [Suspect]
     Active Substance: OXYCODONE
     Dosage: UNK
  11. PHENYTOIN SODIUM. [Suspect]
     Active Substance: PHENYTOIN SODIUM
     Dosage: UNK
  12. BACLOFEN. [Suspect]
     Active Substance: BACLOFEN
     Dosage: UNK
  13. MELOXICAM. [Suspect]
     Active Substance: MELOXICAM
     Dosage: UNK

REACTIONS (1)
  - Drug hypersensitivity [Unknown]
